FAERS Safety Report 9620677 (Version 1)
Quarter: 2013Q4

REPORT INFORMATION
  Report Type: Spontaneous
  Country: NL (occurrence: NL)
  Receive Date: 20131015
  Receipt Date: 20131015
  Transmission Date: 20140711
  Serious: Yes (Death)
  Sender: FDA-Public Use
  Company Number: NL-AMGEN-NLDSP2013071149

PATIENT
  Age: 67 Year
  Sex: Female

DRUGS (15)
  1. XGEVA [Suspect]
     Indication: PROPHYLAXIS
     Dosage: Q4WK
     Route: 065
     Dates: start: 20120726
  2. CLONIDINE HYDROCHLORIDE [Concomitant]
     Dosage: 0.025 MG, UNK
  3. TAMOXIFEN [Concomitant]
     Dosage: 20 MG, UNK
  4. ARTHROTEC [Concomitant]
     Dosage: 75 MG, UNK
  5. FRAXIPARINE                        /01437701/ [Concomitant]
     Dosage: 2850 IE/0.3 ML
  6. PRAMIPREXIN [Concomitant]
     Dosage: 125 MG/0.088 MG
  7. TEMAZEPAM ACTAVIS [Concomitant]
     Dosage: 20 MG, UNK
  8. CALCICHEW D3 [Concomitant]
     Dosage: 500 MG,400 IE UNK
  9. ALENDRONINEZUUR PCH [Concomitant]
     Dosage: 70 MG, PATCH, UNK
  10. LETROZOL [Concomitant]
     Dosage: 2.5 MG, UNK
  11. LYRICA [Concomitant]
     Dosage: 75 MG, UNK
  12. OXYNORM [Concomitant]
     Dosage: 10 MG, UNK
  13. FENTANYL [Concomitant]
     Dosage: 12 MUG, UNK
  14. OXYCONTIN [Concomitant]
     Dosage: 10 MG, UNK
  15. BETAHISTINE DIHCL [Concomitant]
     Dosage: 16 MG, UNK

REACTIONS (1)
  - Death [Fatal]
